FAERS Safety Report 11157381 (Version 1)
Quarter: 2015Q2

REPORT INFORMATION
  Report Type: Spontaneous
  Country: JP (occurrence: JP)
  Receive Date: 20150603
  Receipt Date: 20150603
  Transmission Date: 20150821
  Serious: Yes (Death, Other)
  Sender: FDA-Public Use
  Company Number: JP-ACCORD-031099

PATIENT
  Age: 23 Year
  Sex: Female

DRUGS (4)
  1. METHOTREXATE [Suspect]
     Active Substance: METHOTREXATE
     Indication: PROPHYLAXIS AGAINST GRAFT VERSUS HOST DISEASE
     Dosage: A TOTAL 45 MG/M2 FOUR TIMES AT THE EARLY PHASE OF TRANSPLANTATION (15 MG/M2, 10 MG/M2 THREE TIMES)
  2. PREDNISOLONE. [Suspect]
     Active Substance: PREDNISOLONE
     Indication: PROPHYLAXIS AGAINST GRAFT VERSUS HOST DISEASE
  3. TACROLIMUS. [Suspect]
     Active Substance: TACROLIMUS
     Indication: PROPHYLAXIS AGAINST GRAFT VERSUS HOST DISEASE
  4. CICLOSPORIN [Suspect]
     Active Substance: CYCLOSPORINE
     Indication: PROPHYLAXIS AGAINST GRAFT VERSUS HOST DISEASE

REACTIONS (13)
  - Diabetes mellitus [Unknown]
  - Diarrhoea [Unknown]
  - Altered state of consciousness [Unknown]
  - Ventricular failure [Unknown]
  - Anorectal disorder [Unknown]
  - Graft versus host disease [Unknown]
  - General physical health deterioration [Unknown]
  - Hyperlipidaemia [Unknown]
  - Oesophageal candidiasis [Unknown]
  - Myelopathy [Not Recovered/Not Resolved]
  - Pulmonary alveolar haemorrhage [Fatal]
  - Haematochezia [Unknown]
  - Bladder disorder [Unknown]
